FAERS Safety Report 12502623 (Version 1)
Quarter: 2016Q2

REPORT INFORMATION
  Report Type: Report from Study
  Country: US (occurrence: US)
  Receive Date: 20160627
  Receipt Date: 20160627
  Transmission Date: 20160815
  Serious: No
  Sender: FDA-Public Use
  Company Number: US-AMGEN-USASL2016079539

PATIENT
  Age: 13 Year
  Sex: Female

DRUGS (1)
  1. ENBREL [Suspect]
     Active Substance: ETANERCEPT
     Indication: JUVENILE IDIOPATHIC ARTHRITIS
     Dosage: 15 MG, 2 TIMES/WK
     Route: 065
     Dates: start: 2015

REACTIONS (2)
  - Incorrect product storage [Unknown]
  - Off label use [Unknown]

NARRATIVE: CASE EVENT DATE: 2015
